FAERS Safety Report 7031501-8 (Version None)
Quarter: 2010Q4

REPORT INFORMATION
  Report Type: 
  Country: None (occurrence: None)
  Receive Date: 20101006
  Receipt Date: 20100930
  Transmission Date: 20110411
  Serious: Yes (Hospitalization, Other)
  Sender: FDA-Public Use
  Company Number: JP-GENENTECH-303983

PATIENT
  Age: 6 Year
  Sex: Male

DRUGS (5)
  1. RITUXIMAB [Suspect]
     Indication: NEPHROTIC SYNDROME
     Dosage: 300 MG, UNK
     Route: 042
     Dates: start: 20100114
  2. NEORAL [Concomitant]
     Indication: PROPHYLAXIS
     Dosage: 70 MG, QD
     Route: 048
     Dates: start: 20071223
  3. CELLCEPT [Concomitant]
     Indication: PROPHYLAXIS
     Dosage: 1000 MG, QD
     Route: 048
     Dates: start: 20100115
  4. PREDONINE [Concomitant]
     Indication: NEPHROTIC SYNDROME
     Dosage: 20 MG, Q2D
     Route: 048
     Dates: start: 20090907
  5. BENET [Concomitant]
     Indication: OSTEOPOROSIS
     Dosage: 7.5 MG, 1/WEEK
     Route: 048
     Dates: start: 20091217

REACTIONS (1)
  - AGRANULOCYTOSIS [None]
